FAERS Safety Report 22301350 (Version 4)
Quarter: 2023Q2

REPORT INFORMATION
  Report Type: Spontaneous
  Country: US (occurrence: US)
  Receive Date: 20230509
  Receipt Date: 20230523
  Transmission Date: 20230721
  Serious: No
  Sender: FDA-Public Use
  Company Number: US-SANOFI-01603413

PATIENT
  Age: 11 Month
  Sex: Female

DRUGS (1)
  1. DUPIXENT [Suspect]
     Active Substance: DUPILUMAB
     Indication: Dermatitis atopic
     Dosage: 400 MG 1X
     Dates: start: 20230502, end: 20230502

REACTIONS (5)
  - Weight decreased [Unknown]
  - Eczema [Unknown]
  - Incorrect dose administered [Unknown]
  - Device use issue [Unknown]
  - Product prescribing issue [Unknown]

NARRATIVE: CASE EVENT DATE: 20230501
